FAERS Safety Report 8097537-3 (Version None)
Quarter: 2012Q1

REPORT INFORMATION
  Report Type: 
  Country: None (occurrence: None)
  Receive Date: 20120131
  Receipt Date: 20120124
  Transmission Date: 20120608
  Serious: Yes (Other)
  Sender: FDA-Public Use
  Company Number: US-PFIZER INC-2011269058

PATIENT
  Sex: Male

DRUGS (2)
  1. EFFEXOR [Suspect]
     Dosage: 37.5 MG, 2X/DAY
     Dates: start: 20111024, end: 20111024
  2. EFFEXOR XR [Suspect]
     Dosage: UNKNOWN

REACTIONS (16)
  - TENSION HEADACHE [None]
  - MALAISE [None]
  - FEELING ABNORMAL [None]
  - PARAESTHESIA [None]
  - EMOTIONAL DISORDER [None]
  - ATRIAL FIBRILLATION [None]
  - HYPOAESTHESIA [None]
  - PALPITATIONS [None]
  - MUSCLE TIGHTNESS [None]
  - ANXIETY [None]
  - TINNITUS [None]
  - DRUG INTOLERANCE [None]
  - LIBIDO DECREASED [None]
  - HALLUCINATION [None]
  - RESTLESSNESS [None]
  - INSOMNIA [None]
